FAERS Safety Report 9244691 (Version 2)
Quarter: 2013Q2

REPORT INFORMATION
  Report Type: Spontaneous
  Country: FR (occurrence: FR)
  Receive Date: 20130422
  Receipt Date: 20130507
  Transmission Date: 20140414
  Serious: Yes (Hospitalization, Other)
  Sender: FDA-Public Use
  Company Number: FR-JNJFOC-20130408921

PATIENT
  Age: 73 Year
  Sex: Female

DRUGS (9)
  1. XARELTO [Suspect]
     Indication: CEREBROVASCULAR ACCIDENT PROPHYLAXIS
     Route: 048
     Dates: start: 20121218
  2. XARELTO [Suspect]
     Indication: ATRIAL FIBRILLATION
     Route: 048
     Dates: start: 20121218
  3. NEBILOX [Concomitant]
     Route: 065
     Dates: start: 20121218
  4. COVERSYL [Concomitant]
     Route: 065
  5. THYROZOL [Concomitant]
     Indication: HYPOTHYROIDISM
     Route: 065
     Dates: start: 20130115, end: 20130322
  6. UVEDOSE [Concomitant]
     Route: 065
  7. CHONDROSULF [Concomitant]
     Route: 065
  8. GINKOR FORT [Concomitant]
     Route: 065
  9. FLUINDIONE [Concomitant]
     Route: 065

REACTIONS (1)
  - Renal failure acute [Recovered/Resolved]
